FAERS Safety Report 26188178 (Version 1)
Quarter: 2025Q4

REPORT INFORMATION
  Report Type: Spontaneous
  Country: EU (occurrence: EU)
  Receive Date: 20251222
  Receipt Date: 20251222
  Transmission Date: 20260117
  Serious: Yes (Hospitalization, Other)
  Sender: PFIZER
  Company Number: None

PATIENT
  Age: 53 Year
  Sex: Male
  Weight: 73 kg

DRUGS (39)
  1. CYTARABINE [Suspect]
     Active Substance: CYTARABINE
     Indication: Diffuse large B-cell lymphoma
     Dosage: 2 G/M2 (C1 J1 AND J2)
     Route: 042
     Dates: start: 20231026, end: 20231027
  2. CYTARABINE [Suspect]
     Active Substance: CYTARABINE
     Dosage: 2 G/M2 (C2 J1 AND J2)
     Route: 042
     Dates: start: 20231123, end: 20231124
  3. CYTARABINE [Suspect]
     Active Substance: CYTARABINE
     Dosage: 2 G/M2 (C2 J8 AND J9)
     Route: 042
     Dates: start: 20231130, end: 20231201
  4. CYTARABINE [Suspect]
     Active Substance: CYTARABINE
     Dosage: 2 G/M2 (C3 J1 AND J8)
     Route: 042
     Dates: start: 20231227, end: 20240104
  5. EPCORITAMAB [Suspect]
     Active Substance: EPCORITAMAB
     Indication: Diffuse large B-cell lymphoma
     Dosage: 0.16 MG (C1J1)
     Route: 058
     Dates: start: 20231026, end: 20231026
  6. EPCORITAMAB [Suspect]
     Active Substance: EPCORITAMAB
     Dosage: 0.8 MG (C1J8)
     Route: 058
     Dates: start: 20231103, end: 20231103
  7. EPCORITAMAB [Suspect]
     Active Substance: EPCORITAMAB
     Dosage: 48 MG, WEEKLY (C1J15 AND J22)
     Route: 058
     Dates: start: 20231110, end: 20231117
  8. EPCORITAMAB [Suspect]
     Active Substance: EPCORITAMAB
     Dosage: 48 MG, WEEKLY (C2J1 AND J8)
     Route: 058
     Dates: start: 20231123, end: 20231130
  9. EPCORITAMAB [Suspect]
     Active Substance: EPCORITAMAB
     Dosage: 48 MG, WEEKLY (C3J1 AND J8)
     Route: 058
     Dates: start: 20231227, end: 20240104
  10. EPCORITAMAB [Suspect]
     Active Substance: EPCORITAMAB
     Dosage: 48 MG (2 WEEKS, C4J1 AND J8  )
     Route: 058
     Dates: start: 20240124, end: 20240207
  11. GABAPENTIN [Concomitant]
     Active Substance: GABAPENTIN
     Indication: Pain
     Dosage: 300 MG, 1X/DAY
     Route: 048
     Dates: start: 20240104, end: 20240109
  12. GABAPENTIN [Concomitant]
     Active Substance: GABAPENTIN
     Dosage: 600 MG, 1X/DAY
     Route: 048
     Dates: start: 20240109, end: 20240114
  13. GABAPENTIN [Concomitant]
     Active Substance: GABAPENTIN
     Dosage: 900 MG, 1X/DAY
     Route: 048
     Dates: start: 20240114, end: 20240314
  14. CIPROFLOXACIN [Concomitant]
     Active Substance: CIPROFLOXACIN
     Indication: Pseudomonal bacteraemia
     Dosage: UNK
     Route: 048
     Dates: start: 20231205, end: 20231207
  15. CIPROFLOXACIN [Concomitant]
     Active Substance: CIPROFLOXACIN
     Dosage: 1500 MG, 1X/DAY
     Route: 048
     Dates: start: 20231216, end: 20231221
  16. METOCLOPRAMIDE [Concomitant]
     Active Substance: METOCLOPRAMIDE
     Indication: Nausea
     Dosage: 30 MG, 1X/DAY
     Route: 048
     Dates: start: 20231218, end: 20240218
  17. ZOPICLONE [Concomitant]
     Active Substance: ZOPICLONE
     Indication: Sleep disorder
     Dosage: 7.5 MG, 1X/DAY
     Route: 048
     Dates: start: 20231218, end: 20240218
  18. POTASSIUM CHLORIDE [Concomitant]
     Active Substance: POTASSIUM CHLORIDE
     Indication: Hypokalaemia
     Dosage: 2 DF, 1X/DAY (2 CAPSULES)
     Route: 048
     Dates: start: 20231208, end: 20231208
  19. POTASSIUM CHLORIDE [Concomitant]
     Active Substance: POTASSIUM CHLORIDE
     Dosage: 6 DF, 1X/DAY (2 CAPSULES)
     Route: 048
     Dates: start: 20231209, end: 20231211
  20. POTASSIUM CHLORIDE [Concomitant]
     Active Substance: POTASSIUM CHLORIDE
     Dosage: 2 DF, 1X/DAY (2 CAPSULES)
     Route: 048
     Dates: start: 20231218, end: 20231225
  21. PIPERACILLIN SODIUM\TAZOBACTAM SODIUM [Concomitant]
     Active Substance: PIPERACILLIN SODIUM\TAZOBACTAM SODIUM
     Indication: Bacterial infection
     Dosage: 4 G, 4X/DAY (IN 6 HOURS 4 TIMES A DAY)
     Route: 042
     Dates: start: 20231206, end: 20231215
  22. VEKLURY [Concomitant]
     Active Substance: REMDESIVIR
     Indication: COVID-19
     Dosage: 200 MG, 1X/DAY (200 MG IN 1 HOUR ONCE A DAY)
     Route: 042
     Dates: start: 20231207, end: 20231215
  23. CEFEPIME HYDROCHLORIDE [Concomitant]
     Active Substance: CEFEPIME HYDROCHLORIDE
     Indication: Pseudomonal bacteraemia
     Dosage: 6 G, 1X/DAY
     Route: 042
     Dates: start: 20231215, end: 20231215
  24. AMIKACIN [Concomitant]
     Active Substance: AMIKACIN
     Indication: Bacterial infection
     Dosage: 2500 MG
     Route: 042
     Dates: start: 20231207, end: 20231207
  25. RACECADOTRIL [Concomitant]
     Active Substance: RACECADOTRIL
     Indication: Diarrhoea
     Dosage: 300 MG, 1X/DAY
     Route: 048
     Dates: start: 20231205, end: 20231207
  26. RACECADOTRIL [Concomitant]
     Active Substance: RACECADOTRIL
     Dosage: 300 MG, 1X/DAY
     Route: 048
     Dates: start: 20231218, end: 20240218
  27. SMECTA [Concomitant]
     Active Substance: MONTMORILLONITE
     Indication: Diarrhoea
     Dosage: 3 DF, 1X/DAY (3 SACHETS/JOUR)
     Route: 048
     Dates: start: 20231205, end: 20231207
  28. SMECTA [Concomitant]
     Active Substance: MONTMORILLONITE
     Dosage: 3 DF, 1X/DAY (3 SACHETS/JOUR)
     Route: 048
     Dates: start: 20231218, end: 20240218
  29. AUGMENTIN [Concomitant]
     Active Substance: AMOXICILLIN\CLAVULANATE POTASSIUM
     Indication: Bacterial infection
     Dosage: UNK
     Route: 048
     Dates: start: 20231205, end: 20231207
  30. FILGRASTIM [Concomitant]
     Active Substance: FILGRASTIM
     Indication: Colony stimulating factor therapy
     Dosage: 48 MIU, CYCLIC  (48 MIU/D FROM D7 TO D12 OF EACH CYCLE)
     Route: 058
     Dates: start: 20231129, end: 20240204
  31. DEXAMETHASONE [Concomitant]
     Active Substance: DEXAMETHASONE
     Indication: Prophylaxis
     Dosage: 20 MG, WEEKLY (D1 TO D4 OF EACH COURSE)
     Route: 048
     Dates: start: 20231103, end: 20240210
  32. ELIQUIS [Concomitant]
     Active Substance: APIXABAN
     Indication: Thrombosis
     Dosage: 10 MG, 1X/DAY
     Route: 048
     Dates: start: 202304
  33. ELIQUIS [Concomitant]
     Active Substance: APIXABAN
     Indication: Pulmonary embolism
  34. PANTOPRAZOLE [Concomitant]
     Active Substance: PANTOPRAZOLE
     Dosage: 20 MG, 1X/DAY
     Route: 048
  35. VALACYCLOVIR [Concomitant]
     Active Substance: VALACYCLOVIR HYDROCHLORIDE
     Indication: Infection prophylaxis
     Dosage: 1000 MG, 1X/DAY
     Route: 048
  36. JANUVIA [Concomitant]
     Active Substance: SITAGLIPTIN PHOSPHATE
     Indication: Type 2 diabetes mellitus
     Dosage: 100 MG, 1X/DAY
     Route: 048
  37. BACTRIM [Concomitant]
     Active Substance: SULFAMETHOXAZOLE\TRIMETHOPRIM
     Indication: Infection prophylaxis
     Dosage: 3 DF, WEEKLY (1 TABLET 3 TIMES A WEEK)
     Route: 048
  38. VORICONAZOLE [Concomitant]
     Active Substance: VORICONAZOLE
     Indication: Antifungal prophylaxis
     Dosage: 500 MG, 1X/DAY
     Route: 048
  39. LEUCOVORIN CALCIUM [Concomitant]
     Active Substance: LEUCOVORIN CALCIUM
     Indication: Haematotoxicity
     Dosage: 50 MG, WEEKLY (1 TABLET OF 25 MG TWICE A WEEK)
     Route: 048

REACTIONS (4)
  - Neuropathy peripheral [Not Recovered/Not Resolved]
  - Pneumonia [Not Recovered/Not Resolved]
  - Pancytopenia [Not Recovered/Not Resolved]
  - Off label use [Unknown]

NARRATIVE: CASE EVENT DATE: 20231026
